FAERS Safety Report 7258396-1 (Version None)
Quarter: 2011Q1

REPORT INFORMATION
  Report Type: 
  Country: None (occurrence: None)
  Receive Date: 20110129
  Receipt Date: 20100709
  Transmission Date: 20110831
  Serious: No
  Sender: FDA-Public Use
  Company Number: US-ABBOTT-10P-163-0656270-00

PATIENT
  Age: 57 Year
  Sex: Female

DRUGS (3)
  1. LUNESTA [Concomitant]
     Indication: INSOMNIA
     Dosage: SOMETIMES
  2. HUMIRA [Suspect]
     Indication: PSORIASIS
     Route: 058
     Dates: start: 20100601, end: 20100701
  3. HYZAAR [Concomitant]
     Indication: PRODUCT USED FOR UNKNOWN INDICATION
     Dosage: STATES SHE TRIES TO TAKE IT REGULARLY
     Route: 048

REACTIONS (5)
  - FATIGUE [None]
  - NAUSEA [None]
  - DIZZINESS [None]
  - MALAISE [None]
  - VISUAL IMPAIRMENT [None]
